FAERS Safety Report 17828232 (Version 1)
Quarter: 2020Q2

REPORT INFORMATION
  Report Type: Spontaneous
  Country: CA (occurrence: CA)
  Receive Date: 20200527
  Receipt Date: 20200527
  Transmission Date: 20200714
  Serious: Yes (Other)
  Sender: FDA-Public Use
  Company Number: CA-TEVA-2020-CA-1239774

PATIENT
  Age: 52 Year
  Sex: Female
  Weight: 70 kg

DRUGS (4)
  1. PROCYTOX [Suspect]
     Active Substance: CYCLOPHOSPHAMIDE
     Indication: BREAST CANCER
     Dosage: 1100 MG
     Route: 065
  2. DOCETAXEL. [Suspect]
     Active Substance: DOCETAXEL
     Indication: BREAST CANCER
     Dosage: SOLUTION INTRAVENOUS, 135 MG
     Route: 065
  3. DEXAMETHASONE. [Concomitant]
     Active Substance: DEXAMETHASONE
  4. ONDANSETRON [Concomitant]
     Active Substance: ONDANSETRON

REACTIONS (4)
  - Erythema [Unknown]
  - Skin oedema [Unknown]
  - Rash papular [Unknown]
  - Blister [Unknown]
